FAERS Safety Report 5273122-3 (Version None)
Quarter: 2007Q1

REPORT INFORMATION
  Report Type: 
  Country: None (occurrence: None)
  Receive Date: 20070322
  Receipt Date: 20070312
  Transmission Date: 20070707
  Serious: Yes (Hospitalization)
  Sender: FDA-Public Use
  Company Number: FR-PFIZER INC-2007019047

PATIENT
  Age: 77 Year
  Sex: Male
  Weight: 73 kg

DRUGS (5)
  1. ALDACTONE [Suspect]
     Indication: CARDIAC FAILURE
     Route: 048
  2. LASIX [Suspect]
     Indication: CARDIAC FAILURE
     Dosage: DAILY DOSE:160MG-FREQ:DAILY
     Route: 048
  3. THALIDOMIDE LAPHAL [Suspect]
     Indication: MULTIPLE MYELOMA
     Route: 048
     Dates: start: 20061130, end: 20070201
  4. SINTROM [Suspect]
     Route: 048
  5. DIFFU K [Suspect]
     Indication: HYPOKALAEMIA
     Dosage: TEXT:3 DF-FREQ:1 DF TID
     Route: 048

REACTIONS (3)
  - CUTANEOUS VASCULITIS [None]
  - PURPURA [None]
  - SKIN EXFOLIATION [None]
